FAERS Safety Report 7800918-3 (Version None)
Quarter: 2011Q4

REPORT INFORMATION
  Report Type: 
  Country: None (occurrence: None)
  Receive Date: 20111006
  Receipt Date: 20111004
  Transmission Date: 20120403
  Serious: No
  Sender: FDA-Public Use
  Company Number: US-BAYER-2011-068072

PATIENT
  Age: 25 Year
  Weight: 86.18 kg

DRUGS (3)
  1. KLONOPIN [Concomitant]
  2. SEROQUEL [Concomitant]
  3. MAGNEVIST [Suspect]
     Indication: NUCLEAR MAGNETIC RESONANCE IMAGING
     Dosage: 18 ML, UNK
     Route: 042
     Dates: start: 20110723, end: 20110723

REACTIONS (6)
  - PHARYNGEAL OEDEMA [None]
  - PRURITUS GENERALISED [None]
  - NAUSEA [None]
  - THROAT IRRITATION [None]
  - PRURITUS [None]
  - VOMITING [None]
